FAERS Safety Report 6148171-3 (Version None)
Quarter: 2009Q2

REPORT INFORMATION
  Report Type: 
  Country: None (occurrence: None)
  Receive Date: 20090402
  Receipt Date: 20081211
  Transmission Date: 20091009
  Serious: No
  Sender: FDA-Public Use
  Company Number: 1000004725

PATIENT
  Age: 58 Year
  Sex: Male

DRUGS (1)
  1. SYSTOLIC (NEBIVOLOL HYDROCHLORIDE) (5 MILLIGRAM, TABLETS) [Suspect]
     Indication: HYPERTENSION
     Dosage: 5 MG (5 MG, 1 IN 1 D), ORAL
     Route: 048
     Dates: start: 20081209

REACTIONS (2)
  - DYSGEUSIA [None]
  - NAUSEA [None]
